FAERS Safety Report 5605621-6 (Version None)
Quarter: 2008Q1

REPORT INFORMATION
  Report Type: 
  Country: None (occurrence: None)
  Receive Date: 20080129
  Receipt Date: 20080125
  Transmission Date: 20080703
  Serious: Yes (Other)
  Sender: FDA-Public Use
  Company Number: US-BAYER-200611459BWH

PATIENT
  Age: 78 Year
  Sex: Female
  Weight: 59 kg

DRUGS (25)
  1. NEXAVAR [Suspect]
     Indication: RENAL CELL CARCINOMA
     Dosage: TOTAL DAILY DOSE: 800 MG  UNIT DOSE: 200 MG
     Route: 048
     Dates: start: 20050712
  2. SYNTHROID [Concomitant]
     Dates: start: 19920101
  3. FUROSEMIDE [Concomitant]
  4. GLUCOSAMINE CHONDROITIN [Concomitant]
     Dates: start: 19920101
  5. TYLENOL (CAPLET) [Concomitant]
     Dates: start: 19930101
  6. CENTRUM A TO Z [Concomitant]
     Dates: start: 20040101
  7. ZINC [Concomitant]
  8. AMMONIUM [Concomitant]
  9. LOMOTIL [Concomitant]
     Dates: start: 20050101
  10. COLCHICINE [Concomitant]
  11. TRICOR [Concomitant]
     Dates: start: 20050101
  12. ALLOPURINOL [Concomitant]
     Dates: start: 20050101
  13. LOTREL [Concomitant]
     Dates: start: 20050101
  14. CITALOPRAM HYDROBROMIDE [Concomitant]
     Dates: start: 20050101
  15. ACYCLOVIR [Concomitant]
     Dates: start: 20050101
  16. URISTAT [Concomitant]
     Dates: start: 20050101
  17. PREVACID [Concomitant]
  18. RHINOCORT [Concomitant]
     Dates: start: 20050101
  19. IPRATROPIUM BROMIDE [Concomitant]
     Dates: start: 20060101
  20. TORSEMIDE [Concomitant]
     Dates: start: 20040101
  21. IMODIUM ADVANCED [Concomitant]
     Dates: start: 20050101
  22. CHOLESTYRAMINE [Concomitant]
     Dates: start: 20060101
  23. ATENOLOL [Concomitant]
     Dates: start: 20050101
  24. UROCIT-K [Concomitant]
     Dates: start: 20050101
  25. PREDNISOLONE 1% [Concomitant]
     Dates: start: 19930101

REACTIONS (8)
  - ALOPECIA [None]
  - CHILLS [None]
  - COUGH [None]
  - DRY MOUTH [None]
  - NASOPHARYNGITIS [None]
  - ORAL PAIN [None]
  - RHINORRHOEA [None]
  - SKIN CANCER [None]
